FAERS Safety Report 7581125-9 (Version None)
Quarter: 2011Q2

REPORT INFORMATION
  Report Type: 
  Country: None (occurrence: None)
  Receive Date: 20110629
  Receipt Date: 20110616
  Transmission Date: 20111010
  Serious: Yes (Other)
  Sender: FDA-Public Use
  Company Number: JP-JNJFOC-20101208601

PATIENT
  Age: 76 Year
  Sex: Female
  Weight: 42 kg

DRUGS (10)
  1. REMICADE [Suspect]
     Indication: MULTICENTRIC RETICULOHISTIOCYTOSIS
     Route: 042
     Dates: start: 20091030
  2. LOXONIN [Concomitant]
     Indication: MULTICENTRIC RETICULOHISTIOCYTOSIS
     Dates: start: 20091008
  3. FOSAMAC [Concomitant]
     Indication: OSTEOPOROSIS
  4. REMICADE [Suspect]
     Route: 042
     Dates: start: 20091015
  5. REMICADE [Suspect]
     Route: 042
     Dates: start: 20091127, end: 20100122
  6. RHEUMATREX [Suspect]
     Indication: MULTICENTRIC RETICULOHISTIOCYTOSIS
     Dates: start: 20091015, end: 20100122
  7. MUCOSTA [Concomitant]
     Indication: GASTROINTESTINAL DISORDER THERAPY
     Dates: start: 20091008
  8. ISONIAZID [Suspect]
     Indication: PRODUCT USED FOR UNKNOWN INDICATION
     Dates: start: 20091016, end: 20100909
  9. PREDNISOLONE [Suspect]
     Indication: MULTICENTRIC RETICULOHISTIOCYTOSIS
     Dates: end: 20100128
  10. REMICADE [Suspect]
     Route: 042
     Dates: start: 20100604

REACTIONS (1)
  - PNEUMOCYSTIS JIROVECI PNEUMONIA [None]
